FAERS Safety Report 17397830 (Version 4)
Quarter: 2020Q1

REPORT INFORMATION
  Report Type: Report from Study
  Country: CA (occurrence: CA)
  Receive Date: 20200210
  Receipt Date: 20200306
  Transmission Date: 20200409
  Serious: Yes (Other)
  Sender: FDA-Public Use
  Company Number: CA-JNJFOC-20200110540

PATIENT
  Sex: Female
  Weight: 97.52 kg

DRUGS (1)
  1. REMICADE [Suspect]
     Active Substance: INFLIXIMAB
     Indication: CROHN^S DISEASE
     Route: 042
     Dates: start: 20100615

REACTIONS (7)
  - Lower respiratory tract infection [Not Recovered/Not Resolved]
  - Asthenopia [Recovering/Resolving]
  - Adverse event [Unknown]
  - Eye pain [Unknown]
  - Eye inflammation [Unknown]
  - Oral herpes [Recovered/Resolved]
  - Photophobia [Unknown]

NARRATIVE: CASE EVENT DATE: 2020
